FAERS Safety Report 17118360 (Version 1)
Quarter: 2019Q4

REPORT INFORMATION
  Report Type: Spontaneous
  Country: CH (occurrence: CH)
  Receive Date: 20191205
  Receipt Date: 20191205
  Transmission Date: 20200122
  Serious: Yes (Hospitalization, Other)
  Sender: FDA-Public Use
  Company Number: CH-SA-2019SA330760

PATIENT
  Age: 64 Year
  Sex: Male
  Weight: 84.2 kg

DRUGS (6)
  1. FLUVASTATIN SANDOZ [Concomitant]
     Active Substance: FLUVASTATIN SODIUM
     Dosage: 80 MG, QD
     Route: 048
  2. PLAVIX [Concomitant]
     Active Substance: CLOPIDOGREL BISULFATE
     Dosage: 75 MG, QD
     Route: 048
  3. NOVORAPID [Suspect]
     Active Substance: INSULIN ASPART
     Dosage: UNK
  4. NOVORAPID [Suspect]
     Active Substance: INSULIN ASPART
     Dosage: EXACT DATE OF COMMENCEMENT OF THERAPY NOT DOSAGE ACCORDING TO THE PATIENT^S CORRECTIONS SCHEME
     Route: 058
  5. TOUJEO [Suspect]
     Active Substance: INSULIN GLARGINE
     Dosage: 34 IU, QD
     Route: 058
  6. TOUJEO [Suspect]
     Active Substance: INSULIN GLARGINE
     Dosage: UNK

REACTIONS (4)
  - Malaise [Recovered/Resolved]
  - Altered state of consciousness [Recovered/Resolved]
  - Hypoglycaemia [Recovered/Resolved]
  - Incorrect dose administered [Unknown]

NARRATIVE: CASE EVENT DATE: 20191113
